FAERS Safety Report 9948744 (Version 2)
Quarter: 2014Q1

REPORT INFORMATION
  Report Type: Report from Study
  Country: US (occurrence: US)
  Receive Date: 20140303
  Receipt Date: 20140303
  Transmission Date: 20141002
  Serious: Yes (Other)
  Sender: FDA-Public Use
  Company Number: US-ABBVIE-13P-163-1055216-00

PATIENT
  Age: 62 Year
  Sex: Male

DRUGS (23)
  1. HUMIRA [Suspect]
     Indication: CROHN^S DISEASE
     Dates: start: 20091203, end: 201209
  2. LOMOTIL [Concomitant]
     Indication: PRODUCT USED FOR UNKNOWN INDICATION
     Dosage: 6 DAILY; IF DIARRHEA IS GOOD MIGHT UP IT TO 8 DAILY
  3. B12 [Concomitant]
     Indication: PRODUCT USED FOR UNKNOWN INDICATION
     Dosage: 1 CC
  4. QUESTRAN [Concomitant]
     Indication: CROHN^S DISEASE
     Dosage: 4 GRAMS PER PACKAGE 1-3 OR 4 DAILY
  5. PENTASA [Concomitant]
     Indication: CROHN^S DISEASE
  6. PREDNISONE [Concomitant]
     Indication: PRODUCT USED FOR UNKNOWN INDICATION
  7. PREDNISONE [Concomitant]
  8. METFORMIN [Concomitant]
     Indication: DIABETES MELLITUS
  9. ASA [Concomitant]
     Indication: PROPHYLAXIS
  10. QUINAPRIL [Concomitant]
     Indication: HYPERTENSION
  11. NEXIUM [Concomitant]
     Indication: PRODUCT USED FOR UNKNOWN INDICATION
  12. MAG OXIDE [Concomitant]
     Indication: PRODUCT USED FOR UNKNOWN INDICATION
  13. VITAMIN C [Concomitant]
     Indication: PRODUCT USED FOR UNKNOWN INDICATION
  14. NORCO [Concomitant]
     Indication: ARTHRALGIA
     Dosage: PILL (NO DOSAGE)
  15. NORCO [Concomitant]
     Indication: BACK PAIN
  16. ADVAIR [Concomitant]
     Indication: PRODUCT USED FOR UNKNOWN INDICATION
     Dosage: 250/50
  17. SPIRIVA [Concomitant]
     Indication: PRODUCT USED FOR UNKNOWN INDICATION
  18. BENTOLINE [Concomitant]
     Indication: PRODUCT USED FOR UNKNOWN INDICATION
     Dosage: 90 MCG/ACT; HAND HELD INHALER
  19. FLEXERIL [Concomitant]
     Indication: BACK DISORDER
  20. TRILIPIX CPDR [Concomitant]
     Indication: BLOOD CHOLESTEROL
  21. POTASSIUM [Concomitant]
     Indication: PRODUCT USED FOR UNKNOWN INDICATION
     Dosage: 1080 MILLIGRAM
  22. PYRIDOSTIGM [Concomitant]
     Indication: MYASTHENIA GRAVIS
  23. ENDOCET [Concomitant]
     Indication: BACK PAIN
     Dosage: 10/325 G

REACTIONS (20)
  - Mitral valve replacement [Recovering/Resolving]
  - Restless legs syndrome [Unknown]
  - Insomnia [Unknown]
  - Diarrhoea [Recovered/Resolved]
  - Vomiting [Recovered/Resolved]
  - Abdominal pain [Recovered/Resolved]
  - Incorrect dose administered [Unknown]
  - Device malfunction [Unknown]
  - Incorrect dose administered [Unknown]
  - Incorrect dose administered [Unknown]
  - Incorrect dose administered [Unknown]
  - Incorrect dose administered [Unknown]
  - Incorrect dose administered [Unknown]
  - Incorrect dose administered [Unknown]
  - Device malfunction [Unknown]
  - Device malfunction [Unknown]
  - Device malfunction [Unknown]
  - Device malfunction [Unknown]
  - Device malfunction [Unknown]
  - Device malfunction [Unknown]
